FAERS Safety Report 5421694-8 (Version None)
Quarter: 2007Q3

REPORT INFORMATION
  Report Type: 
  Country: None (occurrence: None)
  Receive Date: 20070821
  Receipt Date: 20070628
  Transmission Date: 20080115
  Serious: Yes (Death, Hospitalization, Other)
  Sender: FDA-Public Use
  Company Number: JP-MERCK-0706USA05420

PATIENT
  Age: 53 Year
  Sex: Female

DRUGS (1)
  1. CUPRIMINE [Suspect]
     Indication: SYSTEMIC SCLEROSIS
     Route: 048

REACTIONS (10)
  - ANOREXIA [None]
  - ASPERGILLOSIS [None]
  - FATIGUE [None]
  - GENERAL SYMPTOM [None]
  - GRAND MAL CONVULSION [None]
  - HYPERTENSION [None]
  - MULTI-ORGAN FAILURE [None]
  - OEDEMA PERIPHERAL [None]
  - PULMONARY ALVEOLAR HAEMORRHAGE [None]
  - SKIN INDURATION [None]
